FAERS Safety Report 24822222 (Version 1)
Quarter: 2025Q1

REPORT INFORMATION
  Report Type: Spontaneous
  Country: US (occurrence: US)
  Receive Date: 20250108
  Receipt Date: 20250108
  Transmission Date: 20250409
  Serious: No
  Sender: ALEXION PHARMACEUTICALS
  Company Number: US-AstraZeneca-CH-00780532AP

PATIENT

DRUGS (1)
  1. BEVESPI AEROSPHERE [Suspect]
     Active Substance: FORMOTEROL FUMARATE\GLYCOPYRROLATE
     Dosage: 9 MICROGRAM, BID
     Route: 065

REACTIONS (9)
  - Influenza [Unknown]
  - Chronic obstructive pulmonary disease [Unknown]
  - Product dose omission issue [Unknown]
  - Oxygen therapy [Unknown]
  - Wrong technique in device usage process [Unknown]
  - Illness [Unknown]
  - Respiratory therapy [Unknown]
  - Cough [Unknown]
  - Dysphonia [Unknown]
